FAERS Safety Report 7525952-2 (Version None)
Quarter: 2011Q2

REPORT INFORMATION
  Report Type: 
  Country: None (occurrence: None)
  Receive Date: 20110606
  Receipt Date: 20110524
  Transmission Date: 20111010
  Serious: Yes (Other)
  Sender: FDA-Public Use
  Company Number: CH-B.I. PHARMACEUTICALS,INC./RIDGEFIELD-2011-DE-03309BY

PATIENT
  Sex: Female
  Weight: 60 kg

DRUGS (2)
  1. CALCIMAGON [Concomitant]
     Dates: start: 20020101
  2. TELMISARTAN [Suspect]
     Dosage: 40 MG
     Route: 048
     Dates: start: 20100202, end: 20100714

REACTIONS (1)
  - HEPATITIS [None]
